FAERS Safety Report 17366562 (Version 4)
Quarter: 2024Q4

REPORT INFORMATION
  Report Type: Spontaneous
  Country: US (occurrence: US)
  Receive Date: 20200204
  Receipt Date: 20241120
  Transmission Date: 20250114
  Serious: Yes (Hospitalization, Other)
  Sender: PFIZER
  Company Number: US-PFIZER INC-2020045329

PATIENT
  Age: 70 Year
  Sex: Female

DRUGS (1)
  1. XELJANZ XR [Suspect]
     Active Substance: TOFACITINIB CITRATE
     Dosage: 11 MG

REACTIONS (5)
  - Cough [Unknown]
  - Ligament rupture [Unknown]
  - Laryngitis [Unknown]
  - Asthma [Unknown]
  - Dysphonia [Unknown]

NARRATIVE: CASE EVENT DATE: 20241115
